FAERS Safety Report 8110519-8 (Version None)
Quarter: 2012Q1

REPORT INFORMATION
  Report Type: 
  Country: None (occurrence: None)
  Receive Date: 20120202
  Receipt Date: 20081110
  Transmission Date: 20120608
  Serious: Yes (Other)
  Sender: FDA-Public Use
  Company Number: PHHY2008NZ28193

PATIENT
  Sex: Female

DRUGS (2)
  1. GLEEVEC [Suspect]
     Indication: CHRONIC MYELOID LEUKAEMIA
     Dosage: 400 MG, UNK
     Route: 048
     Dates: start: 20081110
  2. GLEEVEC [Suspect]
     Dosage: 300 MG, UNK

REACTIONS (4)
  - WHITE BLOOD CELL COUNT ABNORMAL [None]
  - PAIN IN EXTREMITY [None]
  - DYSSTASIA [None]
  - GAIT DISTURBANCE [None]
